FAERS Safety Report 9956762 (Version 1)
Quarter: 2014Q1

REPORT INFORMATION
  Report Type: Report from Study
  Country: US (occurrence: US)
  Receive Date: 20140304
  Receipt Date: 20140304
  Transmission Date: 20141002
  Serious: No
  Sender: FDA-Public Use
  Company Number: US-ABBVIE-13P-163-1098638-00

PATIENT
  Age: 63 Year
  Sex: Female

DRUGS (7)
  1. HUMIRA [Suspect]
     Indication: PSORIASIS
     Dates: start: 2010
  2. EFFEXOR [Concomitant]
     Indication: DEPRESSION
  3. BUSPAR [Concomitant]
     Indication: ANXIETY
  4. PROPRANOLOL [Concomitant]
     Indication: TENSION HEADACHE
     Dosage: LOW DOSAGE
  5. PRILOSEC [Concomitant]
     Indication: GASTROOESOPHAGEAL REFLUX DISEASE
  6. LIALDA [Concomitant]
     Indication: COLITIS
  7. IMODIUM [Concomitant]
     Indication: COLITIS

REACTIONS (3)
  - Asthenia [Not Recovered/Not Resolved]
  - Drug effect incomplete [Not Recovered/Not Resolved]
  - Cystitis [Not Recovered/Not Resolved]
